FAERS Safety Report 5162625-8 (Version None)
Quarter: 2006Q4

REPORT INFORMATION
  Report Type: 
  Country: None (occurrence: None)
  Receive Date: 20061201
  Receipt Date: 20061122
  Transmission Date: 20070319
  Serious: Yes (Hospitalization)
  Sender: FDA-Public Use
  Company Number: 2006UW26423

PATIENT
  Age: 65 Year
  Sex: Male
  Weight: 116 kg

DRUGS (12)
  1. SYMBICORT PMDI [Suspect]
     Indication: CHRONIC OBSTRUCTIVE PULMONARY DISEASE
     Dosage: 2 X (80/4.5 MCG) BID
     Route: 055
     Dates: start: 20060316, end: 20060731
  2. STUDY PROCEDURE [Suspect]
  3. VITAMIN B-12 [Concomitant]
     Indication: MEDICAL DIET
     Route: 048
  4. ASCORBIC ACID [Concomitant]
     Indication: MEDICAL DIET
     Route: 048
  5. FOLIC ACID [Concomitant]
     Indication: MEDICAL DIET
     Route: 048
  6. SIMVASTATIN [Concomitant]
     Indication: HYPERCHOLESTEROLAEMIA
     Route: 048
  7. FUROSEMIDE [Concomitant]
     Indication: DIURETIC THERAPY
     Route: 048
     Dates: end: 20060807
  8. SPIRONOLACTONE [Concomitant]
     Indication: HYPERTENSION
     Route: 048
  9. ATENOLOL [Concomitant]
     Indication: HYPERTENSION
     Route: 048
     Dates: start: 20060807
  10. FELODIPINE [Concomitant]
     Indication: HYPERTENSION
     Route: 048
  11. PRILOSEC [Concomitant]
     Indication: GASTROOESOPHAGEAL REFLUX DISEASE
     Route: 048
  12. VISTARIL [Concomitant]
     Indication: ANXIETY
     Route: 048
     Dates: start: 20060101, end: 20060807

REACTIONS (5)
  - BLOOD PRESSURE SYSTOLIC INCREASED [None]
  - CHRONIC OBSTRUCTIVE PULMONARY DISEASE [None]
  - CONDITION AGGRAVATED [None]
  - HYPONATRAEMIA [None]
  - SINUS TACHYCARDIA [None]
